FAERS Safety Report 13141401 (Version 1)
Quarter: 2017Q1

REPORT INFORMATION
  Report Type: Report from Study
  Country: NL (occurrence: NL)
  Receive Date: 20170123
  Receipt Date: 20170123
  Transmission Date: 20170428
  Serious: Yes (Other)
  Sender: FDA-Public Use
  Company Number: NL-AMGEN-NLDSL2017008472

PATIENT
  Age: 70 Year
  Sex: Female

DRUGS (21)
  1. ARIPIPRAZOL [Concomitant]
     Active Substance: ARIPIPRAZOLE
     Dosage: 15 MG, QD
     Route: 048
     Dates: start: 20160623, end: 20170115
  2. XGEVA [Suspect]
     Active Substance: DENOSUMAB
     Indication: PRODUCT USED FOR UNKNOWN INDICATION
     Dosage: 120 MG, Q4WK
     Route: 058
     Dates: start: 20160216
  3. MACROGOL [Concomitant]
     Active Substance: POLYETHYLENE GLYCOLS
     Dosage: UNK UNK, QD
     Route: 048
     Dates: start: 20160623
  4. PARACETAMOL [Concomitant]
     Active Substance: ACETAMINOPHEN
     Dosage: 500 MG, QD
     Route: 048
     Dates: start: 20160623
  5. VITAMIN B12 [Concomitant]
     Active Substance: CYANOCOBALAMIN
     Dosage: 1000 SR, QD
     Route: 048
     Dates: start: 20161220, end: 20170115
  6. XGEVA [Suspect]
     Active Substance: DENOSUMAB
     Dosage: 1.7 ML (70 MG/ML)
     Route: 065
     Dates: start: 20170112
  7. FENTANYL. [Concomitant]
     Active Substance: FENTANYL
     Dosage: 25 MUG/HR, UNK
     Dates: start: 20161227, end: 20170107
  8. OXYCODON [Concomitant]
     Active Substance: OXYCODONE
     Dosage: 5 MG, QD
     Route: 048
     Dates: start: 20160623, end: 20170115
  9. PREGABALINE [Concomitant]
     Active Substance: PREGABALIN
     Dosage: 300 MG, QD
     Route: 048
     Dates: start: 20161220, end: 20170115
  10. FERROFUMARAAT [Concomitant]
     Dosage: 200 MG, QD
     Route: 048
     Dates: start: 20160623, end: 20170115
  11. TAMOXIFEN [Concomitant]
     Active Substance: TAMOXIFEN
     Dosage: 20 MG, QD
     Route: 048
     Dates: start: 20161222, end: 20170115
  12. CYANOCOBALAMINE [Concomitant]
     Active Substance: CYANOCOBALAMIN
     Dosage: 1000 MUG, QD
     Route: 048
     Dates: start: 20160623
  13. ETORICOXIB [Concomitant]
     Active Substance: ETORICOXIB
     Dosage: 30 MG, QD
     Route: 048
     Dates: start: 20160623, end: 20170115
  14. CALCIUM CARBONATE W/COLECALCIFEROL [Concomitant]
     Active Substance: CALCIUM CARBONATE\CHOLECALCIFEROL
     Dosage: 500 MG CALCIUM (1.25G/440IE), QD
  15. KETOCONAZOL [Concomitant]
     Active Substance: KETOCONAZOLE
     Dosage: 20 MG/G, QD
     Route: 061
     Dates: start: 20170110
  16. XGEVA [Suspect]
     Active Substance: DENOSUMAB
     Dosage: 1.7 ML (70 MG/ML)
     Route: 065
     Dates: start: 20160704
  17. ANASTROZOL [Concomitant]
     Active Substance: ANASTROZOLE
     Dosage: 1 MG, QD
     Route: 048
     Dates: start: 20161220, end: 20170101
  18. CETOMACROGOL [Concomitant]
     Active Substance: COSMETICS
     Dosage: 100 G, UNK
     Route: 061
     Dates: start: 20170110
  19. PREGABALINE [Concomitant]
     Active Substance: PREGABALIN
     Dosage: 150 MG, QD
     Route: 048
     Dates: start: 20160623
  20. DULOXETINE. [Concomitant]
     Active Substance: DULOXETINE
     Dosage: 30 MG, QD
     Route: 048
     Dates: start: 20151208, end: 20170115
  21. OMEPRAZOL [Concomitant]
     Active Substance: OMEPRAZOLE
     Dosage: 40 MG, QD
     Route: 048
     Dates: start: 20151208, end: 20170115

REACTIONS (4)
  - Malaise [Recovering/Resolving]
  - Circulatory collapse [Unknown]
  - Trifascicular block [Unknown]
  - Atrioventricular block complete [Unknown]

NARRATIVE: CASE EVENT DATE: 20170109
